FAERS Safety Report 7162345-4 (Version None)
Quarter: 2010Q4

REPORT INFORMATION
  Report Type: 
  Country: None (occurrence: None)
  Receive Date: 20101215
  Receipt Date: 20091015
  Transmission Date: 20110411
  Serious: Yes (Other)
  Sender: FDA-Public Use
  Company Number: ZA-PFIZER INC-2009284027

PATIENT
  Age: 53 Year

DRUGS (2)
  1. LYRICA [Suspect]
     Indication: PROCEDURAL PAIN
     Route: 048
  2. PLENISH-K [Concomitant]
     Dosage: 600 MG, 1X/DAY
     Route: 048

REACTIONS (2)
  - OEDEMA PERIPHERAL [None]
  - PORTAL HYPERTENSION [None]
